FAERS Safety Report 10787851 (Version 1)
Quarter: 2015Q1

REPORT INFORMATION
  Report Type: Spontaneous
  Country: US (occurrence: US)
  Receive Date: 20150212
  Receipt Date: 20150212
  Transmission Date: 20150721
  Serious: No
  Sender: FDA-Public Use
  Company Number: US-GLAXOSMITHKLINE-A1064949A

PATIENT

DRUGS (6)
  1. LAMICTAL [Suspect]
     Active Substance: LAMOTRIGINE
     Indication: PRODUCT USED FOR UNKNOWN INDICATION
     Route: 065
     Dates: end: 201401
  2. COGENTIN [Concomitant]
     Active Substance: BENZTROPINE MESYLATE
  3. TOPAMAX [Concomitant]
     Active Substance: TOPIRAMATE
  4. LATUDA [Suspect]
     Active Substance: LURASIDONE HYDROCHLORIDE
     Indication: SCHIZOAFFECTIVE DISORDER
     Dosage: INITIATED AT 20 MG DAILY IN MAY 2013, INCREASED TO 120 MG DAILY NOV 2013, DECREASED TO 80 MG DA[...]
     Route: 048
     Dates: start: 201305
  5. MOBIC [Concomitant]
     Active Substance: MELOXICAM
  6. LORAZEPAM. [Concomitant]
     Active Substance: LORAZEPAM

REACTIONS (1)
  - Alanine aminotransferase increased [Not Recovered/Not Resolved]

NARRATIVE: CASE EVENT DATE: 201401
